FAERS Safety Report 25788376 (Version 1)
Quarter: 2025Q3

REPORT INFORMATION
  Report Type: Spontaneous
  Country: EU (occurrence: EU)
  Receive Date: 20250910
  Receipt Date: 20250910
  Transmission Date: 20251020
  Serious: Yes (Hospitalization, Other)
  Sender: PFIZER
  Company Number: None

PATIENT
  Age: 14 Year
  Sex: Male
  Weight: 57 kg

DRUGS (17)
  1. CYTARABINE [Suspect]
     Active Substance: CYTARABINE
     Indication: Acute myeloid leukaemia
     Dosage: 100 MG/M2, 2X/DAY (EVERY 12 HOURS)
     Route: 042
     Dates: start: 20250804, end: 20250811
  2. CYTARABINE [Suspect]
     Active Substance: CYTARABINE
     Indication: Acute myeloid leukaemia
     Route: 037
     Dates: start: 20250804, end: 20250804
  3. CYTARABINE [Suspect]
     Active Substance: CYTARABINE
     Route: 037
     Dates: start: 20250807, end: 20250807
  4. MITOXANTRONE [Suspect]
     Active Substance: MITOXANTRONE HYDROCHLORIDE
     Indication: Acute myeloid leukaemia
     Dosage: 12 MG/M2, 1X/DAY
     Route: 042
     Dates: start: 20250804, end: 20250806
  5. METHOTREXATE [Suspect]
     Active Substance: METHOTREXATE
     Indication: Acute myeloid leukaemia
     Route: 037
     Dates: start: 20250804, end: 20250804
  6. METHOTREXATE [Suspect]
     Active Substance: METHOTREXATE
     Route: 037
     Dates: start: 20250807, end: 20250807
  7. HYDROCORTISONE [Suspect]
     Active Substance: HYDROCORTISONE
     Indication: Acute myeloid leukaemia
     Route: 037
     Dates: start: 20250804, end: 20250804
  8. HYDROCORTISONE [Suspect]
     Active Substance: HYDROCORTISONE
     Route: 037
     Dates: start: 20250807, end: 20250807
  9. HYDROCORTISONE [Concomitant]
     Active Substance: HYDROCORTISONE
  10. VALACYCLOVIR HYDROCHLORIDE [Concomitant]
     Active Substance: VALACYCLOVIR HYDROCHLORIDE
  11. BACTRIM [Concomitant]
     Active Substance: SULFAMETHOXAZOLE\TRIMETHOPRIM
  12. POSACONAZOLE [Concomitant]
     Active Substance: POSACONAZOLE
  13. AMLODIPINE [Concomitant]
     Active Substance: AMLODIPINE BESYLATE
  14. ACETAMINOPHEN [Concomitant]
     Active Substance: ACETAMINOPHEN
  15. PHLOROGLUCINOL [Concomitant]
     Active Substance: PHLOROGLUCINOL
  16. POLYETHYLENE GLYCOLS [Concomitant]
     Active Substance: POLYETHYLENE GLYCOLS
  17. ONDANSETRON [Concomitant]
     Active Substance: ONDANSETRON

REACTIONS (2)
  - Systemic inflammatory response syndrome [Recovered/Resolved]
  - Headache [Recovered/Resolved]

NARRATIVE: CASE EVENT DATE: 20250818
